FAERS Safety Report 9954751 (Version 2)
Quarter: 2014Q1

REPORT INFORMATION
  Report Type: Report from Study
  Country: US (occurrence: US)
  Receive Date: 20140304
  Receipt Date: 20140304
  Transmission Date: 20141002
  Serious: Yes (Hospitalization)
  Sender: FDA-Public Use
  Company Number: US-ABBVIE-13P-163-1073491-00

PATIENT
  Age: 28 Year
  Sex: Female
  Weight: 145.28 kg

DRUGS (2)
  1. HUMIRA [Suspect]
     Indication: COLITIS ULCERATIVE
     Route: 058
     Dates: start: 201212
  2. HUMIRA [Suspect]
     Dates: start: 20130226

REACTIONS (6)
  - Urosepsis [Recovered/Resolved]
  - Staphylococcal infection [Recovered/Resolved]
  - Device malfunction [Unknown]
  - Injection site pain [Unknown]
  - Drug dose omission [Unknown]
  - Injection site erythema [Recovered/Resolved]
